FAERS Safety Report 6693744-2 (Version None)
Quarter: 2010Q2

REPORT INFORMATION
  Report Type: 
  Country: None (occurrence: None)
  Receive Date: 20100423
  Receipt Date: 20090615
  Transmission Date: 20101027
  Serious: No
  Sender: FDA-Public Use
  Company Number: A0788601A

PATIENT
  Age: 44 Year
  Sex: Male

DRUGS (2)
  1. DEXEDRINE [Suspect]
     Indication: ATTENTION DEFICIT/HYPERACTIVITY DISORDER
     Dosage: 15MG PER DAY
     Route: 048
     Dates: start: 19970101
  2. DEXTROAMPHETAMINE [Concomitant]

REACTIONS (3)
  - DISTURBANCE IN ATTENTION [None]
  - MEMORY IMPAIRMENT [None]
  - PRODUCT QUALITY ISSUE [None]
